FAERS Safety Report 6204009-7 (Version None)
Quarter: 2009Q2

REPORT INFORMATION
  Report Type: 
  Country: None (occurrence: None)
  Receive Date: 20090527
  Receipt Date: 20090518
  Transmission Date: 20091009
  Serious: Yes (Hospitalization)
  Sender: FDA-Public Use
  Company Number: DE-ABBOTT-09P-062-0574044-00

PATIENT
  Sex: Female

DRUGS (7)
  1. HUMIRA [Suspect]
     Indication: PSORIATIC ARTHROPATHY
     Dates: start: 20080115, end: 20090109
  2. VERAPAMIL [Concomitant]
     Indication: DRUG USE FOR UNKNOWN INDICATION
  3. FORMO LICH [Concomitant]
     Indication: DRUG USE FOR UNKNOWN INDICATION
  4. L-THYROXIN [Concomitant]
     Indication: DRUG USE FOR UNKNOWN INDICATION
  5. OMEPRAZOL [Concomitant]
     Indication: DRUG USE FOR UNKNOWN INDICATION
  6. AROMASIN [Concomitant]
     Indication: DRUG USE FOR UNKNOWN INDICATION
  7. CORTISON [Concomitant]
     Indication: DRUG USE FOR UNKNOWN INDICATION

REACTIONS (4)
  - CARDIAC DISORDER [None]
  - DYSPNOEA [None]
  - ILL-DEFINED DISORDER [None]
  - INFECTION [None]
